APPROVED DRUG PRODUCT: MILPREM-200
Active Ingredient: ESTROGENS, CONJUGATED; MEPROBAMATE
Strength: 0.45MG;200MG
Dosage Form/Route: TABLET;ORAL
Application: N011045 | Product #002
Applicant: MEDPOINTE PHARMACEUTICALS MEDPOINTE HEALTHCARE INC
Approved: Approved Prior to Jan 1, 1982 | RLD: No | RS: No | Type: DISCN